FAERS Safety Report 4705016-3 (Version None)
Quarter: 2005Q3

REPORT INFORMATION
  Report Type: 
  Country: None (occurrence: None)
  Receive Date: 20050701
  Receipt Date: 20050624
  Transmission Date: 20060218
  Serious: Yes (Other)
  Sender: FDA-Public Use
  Company Number: US-JNJFOC-20050601405

PATIENT
  Sex: Female
  Weight: 63.05 kg

DRUGS (2)
  1. REMICADE [Suspect]
     Indication: RHEUMATOID ARTHRITIS
     Dosage: 30 INFUSIONS TOTAL
     Route: 042
  2. METHOTREXATE [Concomitant]

REACTIONS (1)
  - HODGKIN'S DISEASE MIXED CELLULARITY STAGE IV [None]
